FAERS Safety Report 25363304 (Version 2)
Quarter: 2025Q3

REPORT INFORMATION
  Report Type: Spontaneous
  Country: US (occurrence: US)
  Receive Date: 20250527
  Receipt Date: 20250811
  Transmission Date: 20251020
  Serious: Yes (Other)
  Sender: BRISTOL-MYERS SQUIBB COMPANY
  Company Number: US-BRISTOL-MYERS SQUIBB COMPANY-2025-072810

PATIENT
  Age: 66 Year
  Sex: Male

DRUGS (2)
  1. LENALIDOMIDE [Suspect]
     Active Substance: LENALIDOMIDE
     Indication: Plasma cell myeloma
     Dosage: TAKE 1 CAPSULE BY MOUTH DAILY AS DIRECTED?FOR 3 WEEKS ON AND 1 WEEK OFF
     Route: 048
  2. LENALIDOMIDE [Suspect]
     Active Substance: LENALIDOMIDE
     Dosage: TAKE 1 CAPSULE BY MOUTH DAILY AS DIRECTED FOR 3 WEEKS ON AND 1 WEEK OFF
     Route: 048

REACTIONS (4)
  - Renal disorder [Recovering/Resolving]
  - COVID-19 [Recovering/Resolving]
  - Hepatitis B [Recovering/Resolving]
  - Bronchitis [Not Recovered/Not Resolved]
